FAERS Safety Report 7245609-5 (Version None)
Quarter: 2011Q1

REPORT INFORMATION
  Report Type: 
  Country: None (occurrence: None)
  Receive Date: 20110126
  Receipt Date: 20110113
  Transmission Date: 20110831
  Serious: Yes (Other)
  Sender: FDA-Public Use
  Company Number: PHHY2011JP03430

PATIENT
  Age: 28 Year
  Sex: Female

DRUGS (6)
  1. PREDNISOLONE [Suspect]
     Dosage: 2 MG PER 2 WEEKS
  2. COTRIM [Concomitant]
  3. METHYLPREDNISOLONE [Suspect]
     Indication: IMMUNOSUPPRESSION
     Dosage: 1 G, ONCE/SINGLE FOR 3 DAYS
     Route: 042
  4. PREDNISOLONE [Suspect]
     Indication: IMMUNOSUPPRESSION
     Dosage: 1 MG/KG, ONCE/SINGLE
     Route: 048
  5. CYCLOPHOSPHAMIDE [Suspect]
     Dosage: 2 MG/KG, ONCE/SINGLE
     Route: 048
  6. CYCLOPHOSPHAMIDE [Suspect]
     Dosage: 500 MG, ONCE/SINGLE
     Route: 042

REACTIONS (4)
  - BRONCHOPLEURAL FISTULA [None]
  - COUGH [None]
  - PLEURISY [None]
  - PRODUCTIVE COUGH [None]
